FAERS Safety Report 6761091-6 (Version None)
Quarter: 2010Q2

REPORT INFORMATION
  Report Type: 
  Country: None (occurrence: None)
  Receive Date: 20100608
  Receipt Date: 20100601
  Transmission Date: 20101027
  Serious: Yes (Hospitalization)
  Sender: FDA-Public Use
  Company Number: CHPA2010FR09546

PATIENT
  Sex: Male

DRUGS (12)
  1. SCOPOLAMINE [Suspect]
     Indication: PARKINSON'S DISEASE
     Dosage: 1 MG, Q72H
     Route: 062
     Dates: start: 20100114, end: 20100119
  2. AZILECT [Suspect]
     Indication: PARKINSON'S DISEASE
     Dosage: 1 DF, QD
     Route: 048
     Dates: start: 20100114, end: 20100119
  3. SINEMET [Concomitant]
     Dosage: 200 MG/ 50 MG, UNK
     Route: 065
  4. MODOPAR [Concomitant]
     Dosage: 100 MG, UNK
     Route: 065
  5. MODOPAR [Concomitant]
     Dosage: 125 MG, UNK
     Route: 065
  6. MANTADIX [Concomitant]
     Dosage: 100 MG, UNK
     Route: 065
  7. COMTAN [Concomitant]
     Dosage: 200 MG, UNK
     Route: 065
  8. GUTRON [Concomitant]
     Dosage: 2.5 MG, UNK
     Route: 065
  9. NEXIUM [Concomitant]
     Dosage: 40 MG, UNK
     Route: 048
  10. RIVOTRIL [Concomitant]
     Dosage: 2.5 MG, UNK
     Route: 065
  11. ALLOPURINOL [Concomitant]
     Dosage: 100 MG, UNK
     Route: 065
  12. FORLAX [Concomitant]
     Dosage: 10 G, UNK
     Route: 065

REACTIONS (5)
  - CONFUSIONAL STATE [None]
  - DRUG INTERACTION [None]
  - FALL [None]
  - OFF LABEL USE [None]
  - OVERDOSE [None]
